FAERS Safety Report 11670189 (Version 19)
Quarter: 2016Q2

REPORT INFORMATION
  Report Type: Report from Study
  Country: BE (occurrence: BE)
  Receive Date: 20151028
  Receipt Date: 20160427
  Transmission Date: 20160815
  Serious: Yes (Death, Hospitalization)
  Sender: FDA-Public Use
  Company Number: BE-ABBVIE-15P-013-1486393-00

PATIENT
  Age: 63 Year
  Sex: Male

DRUGS (8)
  1. DUODOPA [Suspect]
     Active Substance: CARBIDOPA\LEVODOPA
     Indication: PARKINSON^S DISEASE
     Dosage: UNKNOWN
     Route: 050
     Dates: start: 20120116, end: 20120120
  2. DUODOPA [Suspect]
     Active Substance: CARBIDOPA\LEVODOPA
     Dosage: AM=8ML; CD=5ML/H DURING 16HRS; ED=3ML
     Route: 050
     Dates: start: 20120120, end: 20120127
  3. DUODOPA [Suspect]
     Active Substance: CARBIDOPA\LEVODOPA
     Dosage: DOSES CONTINUOUSLY MONITORED AND ADAPTED.
     Route: 050
     Dates: start: 20120127, end: 20150811
  4. ASAFLOW [Concomitant]
     Active Substance: ASPIRIN
     Indication: PRODUCT USED FOR UNKNOWN INDICATION
  5. DUODOPA [Suspect]
     Active Substance: CARBIDOPA\LEVODOPA
     Dosage: AM=2ML; CD=5.8ML/H DURING 16HRS; ED=3ML; ND=4.8ML/H DURING 8HRS
     Route: 050
     Dates: start: 20150811, end: 20151223
  6. ESCITALOPRAM [Concomitant]
     Active Substance: ESCITALOPRAM OXALATE
     Indication: PRODUCT USED FOR UNKNOWN INDICATION
  7. DUODOPA [Suspect]
     Active Substance: CARBIDOPA\LEVODOPA
     Dosage: AM=2ML; CD=6ML/HR DURING 16HRS; ED=3ML; ND=4.8ML/HR DURING 8HRS
     Route: 050
     Dates: start: 20151223, end: 20160411
  8. DUODOPA [Suspect]
     Active Substance: CARBIDOPA\LEVODOPA
     Dosage: CD= 6.2ML/HR DURING 16HRS, ED=3ML, ND=4.8ML/HR DURING 8HRS
     Route: 050
     Dates: start: 20160411

REACTIONS (15)
  - Dysphagia [Not Recovered/Not Resolved]
  - Hallucination [Unknown]
  - Pneumonia aspiration [Fatal]
  - Pyrexia [Unknown]
  - Muscle rigidity [Not Recovered/Not Resolved]
  - Cogwheel rigidity [Not Recovered/Not Resolved]
  - Asthenia [Unknown]
  - Bronchitis [Unknown]
  - General physical health deterioration [Recovering/Resolving]
  - Pneumonia [Not Recovered/Not Resolved]
  - Gait disturbance [Unknown]
  - General physical health deterioration [Unknown]
  - On and off phenomenon [Unknown]
  - Pneumonia aspiration [Recovering/Resolving]
  - Confusional state [Not Recovered/Not Resolved]

NARRATIVE: CASE EVENT DATE: 201511
